FAERS Safety Report 8462248-9 (Version None)
Quarter: 2012Q2

REPORT INFORMATION
  Report Type: 
  Country: None (occurrence: None)
  Receive Date: 20120625
  Receipt Date: 20120622
  Transmission Date: 20120825
  Serious: Yes (Death, Hospitalization)
  Sender: FDA-Public Use
  Company Number: PHHY2010JP63267

PATIENT
  Sex: Male

DRUGS (8)
  1. FAMOTIDINE [Concomitant]
     Indication: GASTRITIS
     Dosage: 20 MG, UNK
     Route: 048
  2. TEGRETOL [Suspect]
     Indication: CONVULSION
     Dosage: 50 MG, TID
     Route: 048
     Dates: start: 20091014, end: 20091201
  3. BASEN [Concomitant]
     Indication: DIABETES MELLITUS
     Dosage: 0.4 MG, UNK
     Route: 048
  4. GLAKAY [Concomitant]
     Dosage: 45 MG, UNK
     Route: 048
  5. ENALAPRIL MALEATE [Concomitant]
     Indication: HYPERTENSION
     Dosage: 10 MG, UNK
     Route: 048
  6. CLOBAZAM [Suspect]
     Indication: CONVULSION
     Dosage: 5 MG, QD
     Route: 048
     Dates: start: 20091014, end: 20091201
  7. LIVACT [Concomitant]
     Indication: LIVER DISORDER
     Dosage: 12.45 MG, UNK
     Route: 048
  8. MONILAC [Concomitant]
     Indication: LIVER DISORDER
     Dosage: UNK UKN, UNK
     Route: 048

REACTIONS (33)
  - ALANINE AMINOTRANSFERASE INCREASED [None]
  - RASH [None]
  - BLOOD ALBUMIN DECREASED [None]
  - BLOOD ALKALINE PHOSPHATASE INCREASED [None]
  - MALAISE [None]
  - PNEUMONIA [None]
  - DYSPNOEA [None]
  - RESPIRATORY FAILURE [None]
  - BLOOD CHOLINESTERASE DECREASED [None]
  - BLOOD LACTATE DEHYDROGENASE INCREASED [None]
  - ASPARTATE AMINOTRANSFERASE INCREASED [None]
  - HAEMOGLOBIN DECREASED [None]
  - BLOOD BETA-D-GLUCAN INCREASED [None]
  - PYREXIA [None]
  - PNEUMOCYSTIS JIROVECI PNEUMONIA [None]
  - PNEUMONIA CYTOMEGALOVIRAL [None]
  - C-REACTIVE PROTEIN INCREASED [None]
  - PLATELET COUNT DECREASED [None]
  - LUNG INFILTRATION [None]
  - RESPIRATORY DISTRESS [None]
  - SCAB [None]
  - PRURITUS [None]
  - GAMMA-GLUTAMYLTRANSFERASE INCREASED [None]
  - SURFACTANT PROTEIN INCREASED [None]
  - BLOOD GLUCOSE INCREASED [None]
  - GENERALISED ERYTHEMA [None]
  - DRUG RASH WITH EOSINOPHILIA AND SYSTEMIC SYMPTOMS [None]
  - SKIN EXFOLIATION [None]
  - LYMPHOCYTIC INFILTRATION [None]
  - HUMAN HERPES VIRUS 6 SEROLOGY POSITIVE [None]
  - BLOOD UREA INCREASED [None]
  - DECREASED APPETITE [None]
  - SCRATCH [None]
